FAERS Safety Report 9799115 (Version 1)
Quarter: 2014Q1

REPORT INFORMATION
  Report Type: Spontaneous
  Country: FR (occurrence: None)
  Receive Date: 20140102
  Receipt Date: 20140102
  Transmission Date: 20141002
  Serious: Yes (Other)
  Sender: FDA-Public Use
  Company Number: SYM-2013-14297

PATIENT
  Age: 29 Year
  Sex: Male

DRUGS (6)
  1. FLAGYL [Suspect]
     Indication: UVEITIS
     Route: 048
     Dates: start: 20131126, end: 20131126
  2. OFLOXACIN [Suspect]
     Indication: UVEITIS
     Dosage: ORAL
     Route: 048
     Dates: start: 20131126, end: 20131126
  3. CEFTRIAXONE (CEFTRIAXONE) (CEFTRIAXONE) [Concomitant]
  4. METRONIDAZOLE (METRONIDAZOLE) (METRONIDAZOLE) [Concomitant]
  5. GENTAMICIN (GENTAMICIN) (GENTAMICIN) [Concomitant]
  6. PIPERACILLIN/TAZOBACTAM (PIP/TAZO) (PIPERACILLIN SODIUM, TAZOBACTAM SODIUM) [Concomitant]

REACTIONS (1)
  - Urticaria [None]
